FAERS Safety Report 18559116 (Version 2)
Quarter: 2025Q2

REPORT INFORMATION
  Report Type: Other
  Country: FR (occurrence: FR)
  Receive Date: 20201130
  Receipt Date: 20250530
  Transmission Date: 20250717
  Serious: Yes (Other)
  Sender: ZYDUS PHARM
  Company Number: None

PATIENT

DRUGS (6)
  1. PAROXETINE [Suspect]
     Active Substance: PAROXETINE
     Indication: Depression
     Route: 064
     Dates: start: 20190529, end: 20190609
  2. PAROXETINE [Suspect]
     Active Substance: PAROXETINE
     Route: 064
     Dates: start: 20190716, end: 20200220
  3. CYAMEMAZINE [Suspect]
     Active Substance: CYAMEMAZINE
     Indication: Depression
     Route: 064
     Dates: start: 20190529, end: 20190609
  4. CYAMEMAZINE [Suspect]
     Active Substance: CYAMEMAZINE
     Route: 064
     Dates: end: 20200212
  5. OXAZEPAM [Suspect]
     Active Substance: OXAZEPAM
     Indication: Product used for unknown indication
     Route: 064
     Dates: start: 20190610, end: 20200212
  6. FOLIC ACID [Concomitant]
     Active Substance: FOLIC ACID
     Indication: Product used for unknown indication
     Route: 064

REACTIONS (1)
  - Foetal heart rate disorder [Recovered/Resolved]

NARRATIVE: CASE EVENT DATE: 20200212
